FAERS Safety Report 5124685-X (Version None)
Quarter: 2006Q4

REPORT INFORMATION
  Report Type: 
  Country: None (occurrence: None)
  Receive Date: 20061006
  Receipt Date: 20061006
  Transmission Date: 20070319
  Serious: Yes (Other)
  Sender: FDA-Public Use
  Company Number: None

PATIENT
  Sex: Male
  Weight: 87.5442 kg

DRUGS (1)
  1. BONIVA [Suspect]
     Indication: OSTEOPENIA
     Dosage: ONE MONTHLY PO
     Route: 048
     Dates: start: 20061004, end: 20061004

REACTIONS (4)
  - BONE PAIN [None]
  - CHEST PAIN [None]
  - MALAISE [None]
  - MUSCULOSKELETAL PAIN [None]
